FAERS Safety Report 15479270 (Version 1)
Quarter: 2018Q4

REPORT INFORMATION
  Report Type: Spontaneous
  Country: None (occurrence: US)
  Receive Date: 20181009
  Receipt Date: 20181009
  Transmission Date: 20190205
  Serious: No
  Sender: FDA-Public Use
  Company Number: US-KALEO, INC.-AUVI20170026

PATIENT
  Age: 7 Year
  Sex: Female

DRUGS (1)
  1. AUVI-Q [Suspect]
     Active Substance: EPINEPHRINE
     Indication: ANAPHYLACTIC REACTION
     Dosage: ONCE, IM OR SC

REACTIONS (1)
  - Accidental exposure to product by child [Unknown]
